FAERS Safety Report 12665441 (Version 1)
Quarter: 2016Q3

REPORT INFORMATION
  Report Type: Spontaneous
  Country: BR (occurrence: BR)
  Receive Date: 20160818
  Receipt Date: 20160818
  Transmission Date: 20161109
  Serious: Yes (Hospitalization, Other)
  Sender: FDA-Public Use
  Company Number: BR-GLAXOSMITHKLINE-BR2016GSK117251

PATIENT
  Sex: Male

DRUGS (1)
  1. SERETIDE [Suspect]
     Active Substance: FLUTICASONE PROPIONATE\SALMETEROL XINAFOATE
     Indication: PRODUCT USED FOR UNKNOWN INDICATION

REACTIONS (9)
  - Productive cough [Recovered/Resolved]
  - Cough [Unknown]
  - Pyrexia [Unknown]
  - Ill-defined disorder [Recovered/Resolved]
  - Fatigue [Unknown]
  - Secretion discharge [Unknown]
  - Bacterial infection [Unknown]
  - Abdominal pain upper [Unknown]
  - Cystic fibrosis [Unknown]
